FAERS Safety Report 10254293 (Version 2)
Quarter: 2014Q3

REPORT INFORMATION
  Report Type: Report from Study
  Country: US (occurrence: US)
  Receive Date: 20140624
  Receipt Date: 20140709
  Transmission Date: 20150326
  Serious: Yes (Hospitalization, Other)
  Sender: FDA-Public Use
  Company Number: US-ABBVIE-14P-163-1250104-00

PATIENT
  Age: 13 Year
  Sex: Female
  Weight: 37.68 kg

DRUGS (2)
  1. LUPRON DEPOT-PED [Suspect]
     Active Substance: LEUPROLIDE ACETATE
     Indication: PRECOCIOUS PUBERTY
     Route: 030
     Dates: start: 2013
  2. GROWTH HORMONE [Concomitant]
     Active Substance: SOMATROPIN
     Indication: PRODUCT USED FOR UNKNOWN INDICATION

REACTIONS (3)
  - Appendicitis [Recovered/Resolved]
  - Intestinal mass [Recovered/Resolved]
  - Appendicitis perforated [Recovered/Resolved]

NARRATIVE: CASE EVENT DATE: 201404
